FAERS Safety Report 12199527 (Version 2)
Quarter: 2016Q2

REPORT INFORMATION
  Report Type: Spontaneous
  Country: JP (occurrence: JP)
  Receive Date: 20160322
  Receipt Date: 20160601
  Transmission Date: 20160815
  Serious: Yes (Hospitalization)
  Sender: FDA-Public Use
  Company Number: JP-JNJFOC-20160304372

PATIENT
  Age: 8 Decade
  Sex: Male

DRUGS (1)
  1. TRAMCET [Suspect]
     Active Substance: ACETAMINOPHEN\TRAMADOL
     Indication: PAIN
     Dosage: 1 PER 1 DAY
     Route: 048
     Dates: end: 20160302

REACTIONS (2)
  - Laboratory test [Unknown]
  - Pruritus [Unknown]

NARRATIVE: CASE EVENT DATE: 20160301
